FAERS Safety Report 6024433-5 (Version None)
Quarter: 2008Q4

REPORT INFORMATION
  Report Type: 
  Country: None (occurrence: None)
  Receive Date: 20081231
  Receipt Date: 20081219
  Transmission Date: 20090506
  Serious: Yes (Other)
  Sender: FDA-Public Use
  Company Number: PHHY2008CA32818

PATIENT
  Sex: Female

DRUGS (1)
  1. DIOVAN HCT [Suspect]
     Dosage: 1 TABLET PER DAY
     Route: 048
     Dates: start: 20080801

REACTIONS (2)
  - BLOOD POTASSIUM DECREASED [None]
  - HERNIA [None]
